FAERS Safety Report 5088292-X (Version None)
Quarter: 2006Q3

REPORT INFORMATION
  Report Type: 
  Country: None (occurrence: None)
  Receive Date: 20060821
  Receipt Date: 20060803
  Transmission Date: 20061208
  Serious: Yes (Other)
  Sender: FDA-Public Use
  Company Number: CHPA2006US07918

PATIENT
  Age: 59 Year
  Sex: Male
  Weight: 75.7 kg

DRUGS (4)
  1. NICOTINE [Suspect]
     Indication: SMOKING CESSATION THERAPY
     Dosage: 21 MG, QD, TRANSDERMAL
     Route: 062
     Dates: start: 20060801
  2. DILTIAZEM [Concomitant]
  3. METOPROLOL (METOPROLOL) [Concomitant]
  4. SIMVASTATIN [Concomitant]

REACTIONS (2)
  - NECK PAIN [None]
  - PAIN IN EXTREMITY [None]
